FAERS Safety Report 18541749 (Version 1)
Quarter: 2020Q4

REPORT INFORMATION
  Report Type: Spontaneous
  Country: FR (occurrence: FR)
  Receive Date: 20201124
  Receipt Date: 20201124
  Transmission Date: 20210114
  Serious: Yes (Other)
  Sender: FDA-Public Use
  Company Number: NVSC2020FR307076

PATIENT
  Age: 42 Year
  Sex: Male

DRUGS (3)
  1. ZOLPIDEM [Suspect]
     Active Substance: ZOLPIDEM TARTRATE
     Indication: DRUG ABUSE
     Dosage: 40 MG, TOTAL
     Route: 048
     Dates: start: 20200813, end: 20200814
  2. ALPRAZOLAM. [Suspect]
     Active Substance: ALPRAZOLAM
     Indication: DRUG ABUSE
     Dosage: 8 MG, TOTAL
     Route: 048
     Dates: start: 20200813, end: 20200814
  3. ALCOOL [Suspect]
     Active Substance: ALCOHOL
     Indication: ALCOHOL USE
     Dosage: 3 BIERES
     Route: 048
     Dates: start: 20200814, end: 20200814

REACTIONS (4)
  - Drug abuse [Not Recovered/Not Resolved]
  - Toxicity to various agents [Recovering/Resolving]
  - Aggression [Recovered/Resolved]
  - Agitation [Recovered/Resolved]

NARRATIVE: CASE EVENT DATE: 20200813
